FAERS Safety Report 22728679 (Version 2)
Quarter: 2024Q3

REPORT INFORMATION
  Report Type: Spontaneous
  Country: US (occurrence: US)
  Receive Date: 20230720
  Receipt Date: 20240727
  Transmission Date: 20241016
  Serious: No
  Sender: SANOFI AVENTIS
  Company Number: US-SA-SAC20230718000407

PATIENT
  Sex: Male
  Weight: 96.1 kg

DRUGS (1)
  1. DUPIXENT [Suspect]
     Active Substance: DUPILUMAB
     Indication: Dermatitis allergic
     Dosage: 300 MG, QOW
     Route: 058
     Dates: start: 20190110

REACTIONS (5)
  - Dry skin [Unknown]
  - Erythema [Unknown]
  - Injection site pain [Unknown]
  - Product preparation error [Unknown]
  - Rash [Unknown]
